FAERS Safety Report 4935077-8 (Version None)
Quarter: 2006Q1

REPORT INFORMATION
  Report Type: 
  Country: None (occurrence: None)
  Receive Date: 20060302
  Receipt Date: 20060214
  Transmission Date: 20060701
  Serious: Yes (Hospitalization)
  Sender: FDA-Public Use
  Company Number: 8011218

PATIENT
  Age: 49 Year
  Sex: Female

DRUGS (7)
  1. KEPPRA [Suspect]
     Indication: EPILEPSY
     Dosage: 1000 MG 2/D PO
     Route: 048
     Dates: start: 20050301, end: 20050101
  2. KEPPRA [Suspect]
     Indication: EPILEPSY
     Dosage: 1500 MG 3/D PO
     Route: 048
     Dates: start: 20050101, end: 20050719
  3. DILANTIN [Concomitant]
  4. REGLAN [Concomitant]
  5. PHENOBARBITAL TAB [Concomitant]
  6. PRINIVIL [Concomitant]
  7. NPH INSULIN [Concomitant]

REACTIONS (11)
  - ANAEMIA [None]
  - BLOOD KETONE BODY INCREASED [None]
  - CHEST DISCOMFORT [None]
  - DIABETES MELLITUS INADEQUATE CONTROL [None]
  - HYPERGLYCAEMIA [None]
  - HYPOGLYCAEMIA [None]
  - INAPPROPRIATE ANTIDIURETIC HORMONE SECRETION [None]
  - MYALGIA [None]
  - PETIT MAL EPILEPSY [None]
  - PHARYNGITIS [None]
  - POLYDIPSIA PSYCHOGENIC [None]
